FAERS Safety Report 12449185 (Version 3)
Quarter: 2016Q4

REPORT INFORMATION
  Report Type: Spontaneous
  Country: US (occurrence: US)
  Receive Date: 20160608
  Receipt Date: 20161215
  Transmission Date: 20170207
  Serious: No
  Sender: FDA-Public Use
  Company Number: US-PFIZER INC-2016249773

PATIENT
  Sex: Male

DRUGS (1)
  1. LYRICA [Suspect]
     Active Substance: PREGABALIN
     Dosage: UNK

REACTIONS (7)
  - Muscle spasms [Unknown]
  - Skin discolouration [Unknown]
  - Hypertension [Unknown]
  - Burning sensation [Unknown]
  - Insomnia [Unknown]
  - Muscle injury [Unknown]
  - Pain in extremity [Unknown]
